FAERS Safety Report 5383871-4 (Version None)
Quarter: 2007Q3

REPORT INFORMATION
  Report Type: 
  Country: None (occurrence: None)
  Receive Date: 20070711
  Receipt Date: 20070702
  Transmission Date: 20080115
  Serious: Yes (Hospitalization)
  Sender: FDA-Public Use
  Company Number: US-JNJFOC-20070700797

PATIENT
  Sex: Male
  Weight: 90.72 kg

DRUGS (3)
  1. DURAGESIC-100 [Suspect]
     Dosage: 5 X 100 MCG + 50 MCG
     Route: 062
  2. DURAGESIC-100 [Suspect]
     Indication: PAIN
     Dosage: 5X 100 UG/HR AND 50 UG/HR
     Route: 062
  3. DILAUDID [Suspect]
     Indication: PAIN

REACTIONS (4)
  - HOSPITALISATION [None]
  - HYPERHIDROSIS [None]
  - IMPLANT SITE INFECTION [None]
  - INCORRECT DRUG ADMINISTRATION DURATION [None]
